FAERS Safety Report 13208969 (Version 1)
Quarter: 2017Q1

REPORT INFORMATION
  Report Type: Spontaneous
  Country: US (occurrence: US)
  Receive Date: 20170209
  Receipt Date: 20170209
  Transmission Date: 20170428
  Serious: No
  Sender: FDA-Public Use
  Company Number: US-ROCHE-1730291

PATIENT
  Age: 44 Year
  Sex: Female

DRUGS (1)
  1. XOLAIR [Suspect]
     Active Substance: OMALIZUMAB
     Indication: MALAISE
     Route: 058
     Dates: start: 20150811

REACTIONS (5)
  - Pain [Unknown]
  - Joint swelling [Unknown]
  - Erythema [Unknown]
  - Weight increased [Unknown]
  - Pruritus [Unknown]

NARRATIVE: CASE EVENT DATE: 20160302
